FAERS Safety Report 10039221 (Version 1)
Quarter: 2014Q1

REPORT INFORMATION
  Report Type: Spontaneous
  Country: FR (occurrence: FR)
  Receive Date: 20140326
  Receipt Date: 20140326
  Transmission Date: 20141002
  Serious: Yes (Hospitalization)
  Sender: FDA-Public Use
  Company Number: PHHY2014FR035253

PATIENT
  Age: 83 Year
  Sex: Female

DRUGS (12)
  1. DICLOFENAC SANDOZ [Suspect]
     Indication: BACK PAIN
     Dosage: 50 MG, TID
     Route: 048
     Dates: start: 20111118, end: 20111121
  2. ESIDREX [Interacting]
     Indication: HYPERTENSION
     Dosage: 0.5 DF, QD
     Route: 048
     Dates: end: 20111121
  3. APROVEL [Interacting]
     Indication: HYPERTENSION
     Dosage: 150 MG, QD
     Route: 048
     Dates: end: 20111121
  4. COVERSYL [Interacting]
     Indication: HYPERTENSION
     Dosage: 5 MG, QD
     Route: 048
     Dates: end: 20111121
  5. AMIODARONE [Concomitant]
     Indication: ATRIAL FIBRILLATION
     Dosage: 1 DF
     Route: 048
     Dates: end: 20111126
  6. DOLIPRANE [Concomitant]
     Indication: BACK PAIN
     Route: 048
     Dates: start: 20111118
  7. KARDEGIC [Concomitant]
     Dosage: 1 DF, QD
     Route: 048
  8. OMEPRAZOLE BIOGARAN [Concomitant]
     Indication: BACK PAIN
     Dosage: 1 DF, QD
     Route: 048
     Dates: start: 20111118, end: 20111121
  9. COLTRAMYL [Concomitant]
     Indication: BACK PAIN
     Dosage: 1 DF, TID
     Route: 048
     Dates: start: 20111118, end: 20111121
  10. INEXIUM//ESOMEPRAZOLE MAGNESIUM [Concomitant]
     Dosage: 1 DF, QD
     Route: 048
  11. LERCAN [Concomitant]
     Indication: HYPERTENSION
     Dosage: 5 MG, QD
     Route: 065
  12. FORLAX//MACROGOL 4000 [Concomitant]
     Dosage: 1 DF, QD
     Route: 048

REACTIONS (1)
  - Renal failure acute [Recovering/Resolving]
